FAERS Safety Report 19652505 (Version 1)
Quarter: 2021Q3

REPORT INFORMATION
  Report Type: Spontaneous
  Country: US (occurrence: US)
  Receive Date: 20210803
  Receipt Date: 20210803
  Transmission Date: 20211014
  Serious: No
  Sender: FDA-Public Use
  Company Number: US-SA-2021SA253220

PATIENT
  Age: 74 Year
  Sex: Male

DRUGS (4)
  1. HECTOROL [Concomitant]
     Active Substance: DOXERCALCIFEROL
  2. DOXERCALCIFEROL. [Suspect]
     Active Substance: DOXERCALCIFEROL
     Indication: RENAL DISORDER
  3. DOXERCALCIFEROL. [Suspect]
     Active Substance: DOXERCALCIFEROL
     Indication: CHRONIC KIDNEY DISEASE
     Dosage: UNK
     Dates: start: 2011
  4. DOXERCALCIFEROL. [Suspect]
     Active Substance: DOXERCALCIFEROL
     Indication: BLOOD PARATHYROID HORMONE

REACTIONS (1)
  - Adverse drug reaction [Recovering/Resolving]
